FAERS Safety Report 13736029 (Version 3)
Quarter: 2017Q4

REPORT INFORMATION
  Report Type: Spontaneous
  Country: JP (occurrence: JP)
  Receive Date: 20170710
  Receipt Date: 20171227
  Transmission Date: 20180320
  Serious: Yes (Death, Other)
  Sender: FDA-Public Use
  Company Number: JP-BRISTOL-MYERS SQUIBB COMPANY-BMS-2017-060981

PATIENT

DRUGS (2)
  1. METHYLPREDNISOLONE NA SUCCINATE [Suspect]
     Active Substance: METHYLPREDNISOLONE SODIUM SUCCINATE
     Indication: PNEUMONIA
     Dosage: 4 MG, UNK
     Route: 042
     Dates: start: 20170616
  2. OPDIVO [Suspect]
     Active Substance: NIVOLUMAB
     Indication: HEAD AND NECK CANCER
     Dosage: 3 MG/KG, TWICE PER MONTH
     Route: 041
     Dates: start: 20170623

REACTIONS (2)
  - Substance-induced psychotic disorder [Unknown]
  - Completed suicide [Fatal]

NARRATIVE: CASE EVENT DATE: 20170624
